FAERS Safety Report 9229076 (Version 1)
Quarter: 2013Q2

REPORT INFORMATION
  Report Type: Spontaneous
  Country: DE (occurrence: DE)
  Receive Date: 20130412
  Receipt Date: 20130412
  Transmission Date: 20140414
  Serious: Yes (Hospitalization)
  Sender: FDA-Public Use
  Company Number: DE-PFIZER INC-2013111031

PATIENT
  Age: 87 Year
  Sex: Female
  Weight: 65 kg

DRUGS (1)
  1. CELEBREX [Suspect]
     Indication: PAIN
     Dosage: 200 MG, 2X/DAY
     Dates: start: 20120215, end: 20120228

REACTIONS (3)
  - Post procedural haemorrhage [Recovered/Resolved]
  - Procedural haemorrhage [Recovered/Resolved]
  - Haematoma [Recovered/Resolved]
